FAERS Safety Report 10576082 (Version 1)
Quarter: 2014Q4

REPORT INFORMATION
  Report Type: Spontaneous
  Country: US (occurrence: None)
  Receive Date: 20141110
  Receipt Date: 20141110
  Transmission Date: 20150529
  Serious: No
  Sender: FDA-Public Use
  Company Number: None

PATIENT
  Age: 40 Year
  Sex: Male
  Weight: 131.54 kg

DRUGS (2)
  1. ICY HOT MEDICATED [Suspect]
     Active Substance: MENTHOL
     Indication: ANALGESIC THERAPY
     Dosage: TOPICAL APPLICATION, ONCE FOUR TIMES DAILY APPLIED TO A SURFACE USUALLY THE SKIN
     Route: 061
     Dates: start: 20141108, end: 20141108
  2. ICY HOT MEDICATED [Suspect]
     Active Substance: MENTHOL
     Indication: HEADACHE
     Dosage: TOPICAL APPLICATION, ONCE FOUR TIMES DAILY APPLIED TO A SURFACE USUALLY THE SKIN
     Route: 061
     Dates: start: 20141108, end: 20141108

REACTIONS (5)
  - Burns first degree [None]
  - Skin discolouration [None]
  - Chemical injury [None]
  - Pain [None]
  - Burning sensation [None]

NARRATIVE: CASE EVENT DATE: 20141108
